FAERS Safety Report 23997412 (Version 1)
Quarter: 2024Q2

REPORT INFORMATION
  Report Type: Spontaneous
  Country: US (occurrence: US)
  Receive Date: 20240621
  Receipt Date: 20240621
  Transmission Date: 20240716
  Serious: No
  Sender: FDA-Public Use
  Company Number: US-BRAEBURN-US-BRA-24-000245

PATIENT
  Sex: Female

DRUGS (3)
  1. BRIXADI [Suspect]
     Active Substance: BUPRENORPHINE
     Indication: Product used for unknown indication
     Dosage: 128 MILLIGRAM, MONTHLY
     Route: 065
     Dates: start: 202312
  2. BRIXADI [Suspect]
     Active Substance: BUPRENORPHINE
     Dosage: 64 MILLIGRAM, MONTHLY
     Route: 065
     Dates: start: 202402
  3. BRIXADI [Suspect]
     Active Substance: BUPRENORPHINE
     Dosage: 128 MILLIGRAM, MONTHLY
     Route: 065

REACTIONS (2)
  - Drug dependence [Recovered/Resolved]
  - Withdrawal syndrome [Recovered/Resolved]
